FAERS Safety Report 16912398 (Version 2)
Quarter: 2024Q3

REPORT INFORMATION
  Report Type: Spontaneous
  Country: FR (occurrence: FR)
  Receive Date: 20191014
  Receipt Date: 20240905
  Transmission Date: 20241016
  Serious: Yes (Other)
  Sender: TEVA
  Company Number: None

PATIENT
  Age: 70 Year
  Sex: Female

DRUGS (15)
  1. PREDNISONE [Suspect]
     Active Substance: PREDNISONE
     Indication: Bronchitis
     Route: 048
     Dates: start: 20180305, end: 20180307
  2. PREDNISONE [Suspect]
     Active Substance: PREDNISONE
     Indication: Bronchitis
     Dosage: 1 G, QD
     Route: 048
     Dates: start: 20180305, end: 20180310
  3. MOMETASONE [Suspect]
     Active Substance: MOMETASONE
     Indication: Product used for unknown indication
     Dosage: MOMETASONE FUROATE, 100 ?G, QD
     Route: 048
     Dates: start: 20180305
  4. MOMETASONE [Suspect]
     Active Substance: MOMETASONE
     Indication: Product used for unknown indication
     Dosage: MOMETASONE FUROATE, 50 MICROGRAM PER GRAM
     Route: 048
     Dates: start: 20180305
  5. ACETAMINOPHEN [Suspect]
     Active Substance: ACETAMINOPHEN
     Indication: Bronchitis
     Route: 048
     Dates: start: 20180305, end: 20180310
  6. OXAZEPAM [Concomitant]
     Active Substance: OXAZEPAM
     Indication: Product used for unknown indication
     Route: 065
  7. OXOMEMAZINE [Suspect]
     Active Substance: OXOMEMAZINE
     Indication: Bronchitis
     Route: 048
     Dates: start: 20180305, end: 20180310
  8. ACETYLCYSTEINE [Suspect]
     Active Substance: ACETYLCYSTEINE
     Indication: Bronchitis
     Dosage: 400 MG, QD
     Route: 048
     Dates: start: 20180305, end: 20180309
  9. ACETYLCYSTEINE [Suspect]
     Active Substance: ACETYLCYSTEINE
     Indication: Bronchitis
     Dosage: 40 MG, QD
     Route: 048
     Dates: start: 20180305, end: 20180309
  10. ACETYLCYSTEINE [Suspect]
     Active Substance: ACETYLCYSTEINE
     Indication: Bronchitis
     Dosage: 200 MG, QD
     Route: 048
     Dates: start: 20180305, end: 20180309
  11. LEVOTHYROXINE [Concomitant]
     Active Substance: LEVOTHYROXINE\LEVOTHYROXINE SODIUM
     Indication: Product used for unknown indication
     Route: 065
  12. AMOXICILLIN [Suspect]
     Active Substance: AMOXICILLIN
     Indication: Bronchitis
     Dosage: 3 UNK
     Route: 065
     Dates: start: 20180305
  13. AMOXICILLIN [Suspect]
     Active Substance: AMOXICILLIN
     Indication: Bronchitis
     Dosage: 1 G, QD
     Route: 048
     Dates: start: 20180305, end: 20180310
  14. ACETAMINOPHEN [Suspect]
     Active Substance: ACETAMINOPHEN
     Indication: Bronchitis
     Dosage: 3 G
     Route: 048
     Dates: start: 20180305, end: 20180310
  15. ACETAMINOPHEN [Suspect]
     Active Substance: ACETAMINOPHEN
     Indication: Bronchitis
     Dosage: CUMULATIVE DOSE: 18 G/G, 3 GRAM PER GRAM, QD
     Route: 048
     Dates: start: 20180305, end: 20180310

REACTIONS (4)
  - Rash maculo-papular [Recovered/Resolved]
  - Rash [Recovered/Resolved]
  - Pruritus [Recovered/Resolved]
  - Skin burning sensation [Recovered/Resolved]

NARRATIVE: CASE EVENT DATE: 20190309
